FAERS Safety Report 8550791-3 (Version None)
Quarter: 2012Q3

REPORT INFORMATION
  Report Type: 
  Country: None (occurrence: None)
  Receive Date: 20120730
  Receipt Date: 20120723
  Transmission Date: 20120928
  Serious: No
  Sender: FDA-Public Use
  Company Number: US-B.I. PHARMACEUTICALS,INC./RIDGEFIELD-2012-BP-16367BP

PATIENT
  Sex: Male
  Weight: 204 kg

DRUGS (8)
  1. METFORMIN HYDROCHLORIDE [Concomitant]
     Indication: DIABETES MELLITUS
  2. PRADAXA [Suspect]
     Indication: ATRIAL FIBRILLATION
     Dosage: 300 MG
     Route: 048
     Dates: start: 20100101
  3. FUROSEMIDE [Concomitant]
  4. CRESTOR [Concomitant]
     Indication: BLOOD CHOLESTEROL INCREASED
  5. METOPROLOL TARTRATE [Concomitant]
     Indication: HYPERTENSION
  6. ALLOPURINOL [Concomitant]
     Indication: GOUT
  7. RAMIPRIL [Concomitant]
     Indication: HYPERTENSION
  8. DIGOXIN [Concomitant]

REACTIONS (8)
  - HAEMORRHAGE [None]
  - ABDOMINAL DISCOMFORT [None]
  - DENTAL CARIES [None]
  - HYPOAESTHESIA [None]
  - ARTHRALGIA [None]
  - TOOTH FRACTURE [None]
  - COAGULATION TEST ABNORMAL [None]
  - INGROWING NAIL [None]
